FAERS Safety Report 16846549 (Version 1)
Quarter: 2019Q3

REPORT INFORMATION
  Report Type: Spontaneous
  Country: DK (occurrence: DK)
  Receive Date: 20190924
  Receipt Date: 20190924
  Transmission Date: 20191005
  Serious: Yes (Hospitalization)
  Sender: FDA-Public Use
  Company Number: DK-ASTRAZENECA-2019SF31624

PATIENT
  Sex: Male
  Weight: 70 kg

DRUGS (18)
  1. FURIX (FUROSEMIDE) [Suspect]
     Active Substance: FUROSEMIDE
     Route: 065
  2. HJERDYL [Suspect]
     Active Substance: ASPIRIN
     Route: 065
  3. ARANESP [Suspect]
     Active Substance: DARBEPOETIN ALFA
     Dosage: 40 MG E.S (NOT FURTHER SPECIFIED)
     Route: 065
  4. SPIRIVA [Suspect]
     Active Substance: TIOTROPIUM BROMIDE MONOHYDRATE
     Dosage: UNK, ONCE DAILY
     Route: 065
  5. GLYCERYL TRINITRATE [Suspect]
     Active Substance: NITROGLYCERIN
     Dosage: UNK, AS NECESSARY
     Route: 065
  6. SIMVASTATIN. [Interacting]
     Active Substance: SIMVASTATIN
     Route: 048
  7. CLOPIDOGREL [Suspect]
     Active Substance: CLOPIDOGREL BISULFATE
     Route: 065
  8. SYMBICORT [Suspect]
     Active Substance: BUDESONIDE\FORMOTEROL FUMARATE DIHYDRATE
     Dosage: UNK, ONCE DAILY
     Route: 055
  9. CARDOPAX [Suspect]
     Active Substance: ISOSORBIDE DINITRATE
     Route: 065
  10. MAGNESIA [Suspect]
     Active Substance: MAGNESIUM HYDROXIDE
     Route: 065
  11. IRON [Suspect]
     Active Substance: IRON
     Dosage: 1 X 2 (NOT FURTHER SPECIFIED)
     Route: 065
  12. IMOVANE [Suspect]
     Active Substance: ZOPICLONE
     Route: 065
  13. VERAPAMIL [Interacting]
     Active Substance: VERAPAMIL HYDROCHLORIDE
     Route: 065
  14. DIGOXIN. [Suspect]
     Active Substance: DIGOXIN
     Route: 065
  15. MAREVAN [Suspect]
     Active Substance: WARFARIN SODIUM
     Dosage: UNK
     Route: 065
  16. PAMOL [Suspect]
     Active Substance: ACETAMINOPHEN
     Route: 065
  17. DIAZEPAM. [Suspect]
     Active Substance: DIAZEPAM
     Route: 065
  18. METFORMIN [Suspect]
     Active Substance: METFORMIN HYDROCHLORIDE
     Dosage: NON-AZ PRODUCT
     Route: 065

REACTIONS (6)
  - Malaise [Unknown]
  - Normochromic normocytic anaemia [Unknown]
  - Supraventricular tachycardia [Unknown]
  - Drug interaction [Unknown]
  - Dyspnoea [Unknown]
  - Fatigue [Unknown]

NARRATIVE: CASE EVENT DATE: 20190510
